FAERS Safety Report 14148798 (Version 1)
Quarter: 2017Q4

REPORT INFORMATION
  Report Type: Spontaneous
  Country: US (occurrence: US)
  Receive Date: 20171101
  Receipt Date: 20171101
  Transmission Date: 20180321
  Serious: Yes (Other)
  Sender: FDA-Public Use
  Company Number: US-GLAXOSMITHKLINE-US2017165611

PATIENT
  Age: 80 Year
  Sex: Female

DRUGS (5)
  1. NITROGLYCERIN TRANSDERMAL PATCH [Concomitant]
  2. COREG CR [Suspect]
     Active Substance: CARVEDILOL PHOSPHATE
     Dosage: 40 MG, QD
     Dates: start: 201710
  3. COREG CR [Suspect]
     Active Substance: CARVEDILOL PHOSPHATE
     Indication: CARDIAC DISORDER
     Dosage: 20 MG, BID
     Dates: start: 1999
  4. DIOVAN [Concomitant]
     Active Substance: VALSARTAN
  5. AMLODIPIN [Concomitant]
     Active Substance: AMLODIPINE BESYLATE

REACTIONS (2)
  - Angina pectoris [Recovered/Resolved]
  - Palpitations [Recovered/Resolved]

NARRATIVE: CASE EVENT DATE: 201710
